FAERS Safety Report 21205873 (Version 4)
Quarter: 2024Q1

REPORT INFORMATION
  Report Type: Spontaneous
  Country: US (occurrence: US)
  Receive Date: 20220812
  Receipt Date: 20240125
  Transmission Date: 20240410
  Serious: Yes (Hospitalization)
  Sender: FDA-Public Use
  Company Number: US-BIOGEN-2022BI01145757

PATIENT
  Age: 63 Year
  Sex: Female

DRUGS (4)
  1. AVONEX PEN [Suspect]
     Active Substance: INTERFERON BETA-1A
     Indication: Multiple sclerosis
     Route: 050
  2. AVONEX PEN [Suspect]
     Active Substance: INTERFERON BETA-1A
     Route: 050
     Dates: start: 20100528
  3. AVONEX PEN [Suspect]
     Active Substance: INTERFERON BETA-1A
  4. AVONEX PEN [Suspect]
     Active Substance: INTERFERON BETA-1A

REACTIONS (6)
  - Intervertebral disc degeneration [Unknown]
  - Hypokinesia [Not Recovered/Not Resolved]
  - Weight increased [Unknown]
  - Paranoia [Unknown]
  - Procedural pain [Not Recovered/Not Resolved]
  - Procedural dizziness [Not Recovered/Not Resolved]

NARRATIVE: CASE EVENT DATE: 20220612
